FAERS Safety Report 19304863 (Version 1)
Quarter: 2021Q2

REPORT INFORMATION
  Report Type: Report from Study
  Country: US (occurrence: US)
  Receive Date: 20210525
  Receipt Date: 20210525
  Transmission Date: 20210717
  Serious: Yes (Hospitalization)
  Sender: FDA-Public Use
  Company Number: US-MYLANLABS-2021M1024020

PATIENT
  Sex: Female

DRUGS (2)
  1. CLOZAPINE. [Suspect]
     Active Substance: CLOZAPINE
     Indication: DELUSION
  2. CLOZAPINE. [Suspect]
     Active Substance: CLOZAPINE
     Indication: SUICIDAL IDEATION
     Dosage: UNK

REACTIONS (2)
  - Living in residential institution [Unknown]
  - Hospitalisation [Unknown]
